FAERS Safety Report 9238441 (Version 1)
Quarter: 2013Q2

REPORT INFORMATION
  Report Type: Spontaneous
  Country: US (occurrence: None)
  Receive Date: 20130417
  Receipt Date: 20130417
  Transmission Date: 20140414
  Serious: No
  Sender: FDA-Public Use
  Company Number: None

PATIENT
  Sex: Female
  Weight: 81.65 kg

DRUGS (1)
  1. LEVALBUTEROL HCL [Suspect]
     Dates: start: 20130405

REACTIONS (6)
  - Dizziness [None]
  - Dry mouth [None]
  - Headache [None]
  - Heart rate irregular [None]
  - Pyrexia [None]
  - Asthenia [None]
